FAERS Safety Report 12159019 (Version 1)
Quarter: 2016Q1

REPORT INFORMATION
  Report Type: Report from Study
  Country: US (occurrence: US)
  Receive Date: 20160308
  Receipt Date: 20160308
  Transmission Date: 20160526
  Serious: Yes (Other)
  Sender: FDA-Public Use
  Company Number: US-BAXALTA-2016BLT001287

PATIENT
  Sex: Female

DRUGS (1)
  1. GAMMAGARD LIQUID [Suspect]
     Active Substance: HUMAN IMMUNOGLOBULIN G
     Indication: PRIMARY IMMUNODEFICIENCY SYNDROME
     Dosage: FIRST INFUSION
     Route: 042

REACTIONS (6)
  - Ear infection [Unknown]
  - Blister [Unknown]
  - Dizziness [Unknown]
  - Ear disorder [Unknown]
  - Influenza like illness [Unknown]
  - Sinusitis [Unknown]
